FAERS Safety Report 16170763 (Version 3)
Quarter: 2019Q2

REPORT INFORMATION
  Report Type: Report from Study
  Country: US (occurrence: US)
  Receive Date: 20190408
  Receipt Date: 20190416
  Transmission Date: 20190711
  Serious: Yes (Hospitalization, Other)
  Sender: FDA-Public Use
  Company Number: US-GILEAD-2019-0400912

PATIENT
  Age: 34 Year
  Sex: Female

DRUGS (16)
  1. CIPROFLOXACIN. [Concomitant]
     Active Substance: CIPROFLOXACIN
  2. BUDESONIDE. [Concomitant]
     Active Substance: BUDESONIDE
  3. PRENATAL VITAMINS [MINERALS NOS;VITAMINS NOS] [Concomitant]
     Active Substance: MINERALS\VITAMINS
  4. IPRATROPIUM [IPRATROPIUM BROMIDE] [Concomitant]
  5. PULMOZYME [Concomitant]
     Active Substance: DORNASE ALFA
  6. LEVOTHYROXINE. [Concomitant]
     Active Substance: LEVOTHYROXINE
  7. LIDOCAINE. [Concomitant]
     Active Substance: LIDOCAINE
  8. MONTELUKAST [Concomitant]
     Active Substance: MONTELUKAST SODIUM
  9. PANTOPRAZOLE [Concomitant]
     Active Substance: PANTOPRAZOLE
  10. GIANVI [Concomitant]
     Active Substance: DROSPIRENONE\ETHINYL ESTRADIOL
  11. PHILLIPS ORIGINAL MILK OF MAGNESIA [Concomitant]
     Active Substance: MAGNESIUM HYDROXIDE
  12. AZTREONAM LYSINE [Suspect]
     Active Substance: AZTREONAM LYSINE
     Indication: CYSTIC FIBROSIS
     Dosage: 75 MG, TID, FOR 28 DAYS THEN ALTERNATE WITH COLISTIMETHATE
     Dates: start: 20160417
  13. COLISTIMETHATE [COLISTIMETHATE SODIUM] [Concomitant]
     Dosage: UNK, ALTERNATING Q28 DAYS WITH AZTREONAM LYSINE
  14. POLYETHYLENE GLYCOL [Concomitant]
     Active Substance: POLYETHYLENE GLYCOLS
  15. FLUDROCORTISONE [Concomitant]
     Active Substance: FLUDROCORTISONE
  16. HYDROCORT [HYDROCORTISONE ACETATE] [Concomitant]

REACTIONS (3)
  - Cystic fibrosis [Unknown]
  - Rib fracture [Unknown]
  - Parainfluenzae virus infection [Not Recovered/Not Resolved]

NARRATIVE: CASE EVENT DATE: 20190326
